FAERS Safety Report 5089955-2 (Version None)
Quarter: 2006Q3

REPORT INFORMATION
  Report Type: 
  Country: None (occurrence: None)
  Receive Date: 20060828
  Receipt Date: 20060821
  Transmission Date: 20061208
  Serious: Yes (Other)
  Sender: FDA-Public Use
  Company Number: DK-BRISTOL-MYERS SQUIBB COMPANY-13483532

PATIENT
  Age: 37 Year
  Sex: Male

DRUGS (2)
  1. EFAVIRENZ [Suspect]
     Dosage: DECREASED TO 400 MG ONCE DAILY AND FURTHER DECREASED TO 200 MG ONCE DAILY.
  2. LOPINAVIR + RITONAVIR [Interacting]
     Dosage: 533/133 MG

REACTIONS (7)
  - DIARRHOEA [None]
  - DIZZINESS [None]
  - DRUG INTERACTION [None]
  - DRUG LEVEL INCREASED [None]
  - FATIGUE [None]
  - GENE MUTATION [None]
  - INSOMNIA [None]
